FAERS Safety Report 8298325-5 (Version None)
Quarter: 2012Q2

REPORT INFORMATION
  Report Type: 
  Country: None (occurrence: None)
  Receive Date: 20120419
  Receipt Date: 20120416
  Transmission Date: 20120825
  Serious: Yes (Hospitalization)
  Sender: FDA-Public Use
  Company Number: PHHO2010FR18168

PATIENT
  Sex: Male
  Weight: 93 kg

DRUGS (25)
  1. NEORAL [Suspect]
     Indication: RENAL TRANSPLANT
     Dosage: 500 MG, QD (250 MG / J)
     Route: 048
     Dates: start: 20101031
  2. XATRAL                                  /FRA/ [Concomitant]
  3. BACTRIM [Concomitant]
  4. PHOSPHONEUROS [Concomitant]
  5. LANTUS [Concomitant]
  6. MYCOPHENOLATE MOFETIL (CELLCEPT) [Concomitant]
     Dosage: 2 G, QD (2 G / J)
     Route: 048
  7. CEFTAZIDIME [Concomitant]
  8. LASIX [Concomitant]
  9. PREVISCAN [Concomitant]
  10. NEORAL [Suspect]
     Dosage: 350 MG, UNK
     Route: 048
  11. VALGANCICLOVIR [Concomitant]
  12. PREDNISONE TAB [Suspect]
     Dosage: 15 MG, QD (15 MG / J)
     Route: 048
     Dates: start: 20101031
  13. AMLODIPINE BESYLATE [Concomitant]
  14. NOVORAPID [Concomitant]
  15. ASPEGIC 1000 [Concomitant]
  16. NEORAL [Suspect]
     Dosage: 250 MG, QD (250 MG / J)
     Route: 048
  17. MYCOPHENOLATE MOFETIL (CELLCEPT) [Concomitant]
     Indication: RENAL TRANSPLANT
     Dosage: 3 G, QD (3 G / J)
     Route: 048
     Dates: start: 20101028
  18. DUPHALAC [Concomitant]
  19. ATORVASTATIN [Concomitant]
  20. EPREX [Concomitant]
  21. ZOLPIDEM TARTRATE [Concomitant]
  22. ASPIRIN [Concomitant]
  23. PANTOPRAZOLE [Concomitant]
  24. SOTALOL HCL [Concomitant]
  25. POTASSIUM CHLORIDE [Concomitant]

REACTIONS (3)
  - ABDOMINAL ABSCESS [None]
  - WOUND DEHISCENCE [None]
  - PSEUDOMONAL SEPSIS [None]
